FAERS Safety Report 16914971 (Version 6)
Quarter: 2020Q2

REPORT INFORMATION
  Report Type: Spontaneous
  Country: PT (occurrence: PT)
  Receive Date: 20191014
  Receipt Date: 20200427
  Transmission Date: 20200713
  Serious: Yes (Death, Hospitalization, Other)
  Sender: FDA-Public Use
  Company Number: PT-MYLANLABS-2019M1095933

PATIENT
  Age: 47 Year
  Sex: Male

DRUGS (12)
  1. CYAMEMAZINE [Interacting]
     Active Substance: CYAMEMAZINE
     Indication: INTELLECTUAL DISABILITY
  2. HALOPERIDOL. [Interacting]
     Active Substance: HALOPERIDOL
     Indication: SCHIZOPHRENIA
     Dosage: UNK
     Route: 065
  3. HALOPERIDOL. [Interacting]
     Active Substance: HALOPERIDOL
     Indication: INTELLECTUAL DISABILITY
  4. QUETIAPINE. [Interacting]
     Active Substance: QUETIAPINE
     Indication: INTELLECTUAL DISABILITY
  5. CARBAMAZEPINE. [Concomitant]
     Active Substance: CARBAMAZEPINE
     Indication: SCHIZOPHRENIA
     Dosage: UNK
  6. ZOTEPINE [Interacting]
     Active Substance: ZOTEPINE
     Indication: SCHIZOPHRENIA
     Dosage: UNK
     Route: 065
  7. ZOTEPINE [Interacting]
     Active Substance: ZOTEPINE
     Indication: INTELLECTUAL DISABILITY
  8. DOMPERIDONE [Concomitant]
     Active Substance: DOMPERIDONE
     Indication: SCHIZOPHRENIA
     Dosage: UNK
     Route: 065
  9. QUETIAPINE. [Suspect]
     Active Substance: QUETIAPINE
     Indication: SCHIZOPHRENIA
     Dosage: UNK
     Route: 065
  10. BIPERIDEN [Interacting]
     Active Substance: BIPERIDEN
     Indication: INTELLECTUAL DISABILITY
  11. CYAMEMAZINE [Interacting]
     Active Substance: CYAMEMAZINE
     Indication: SCHIZOPHRENIA
     Dosage: UNK
     Route: 065
  12. BIPERIDEN [Interacting]
     Active Substance: BIPERIDEN
     Indication: SCHIZOPHRENIA
     Dosage: UNK
     Route: 065

REACTIONS (5)
  - Drug interaction [Unknown]
  - Death [Fatal]
  - Depressed level of consciousness [Unknown]
  - Colitis ischaemic [Unknown]
  - Shock [Unknown]
